FAERS Safety Report 6251965-7 (Version None)
Quarter: 2009Q2

REPORT INFORMATION
  Report Type: 
  Country: None (occurrence: None)
  Receive Date: 20090630
  Receipt Date: 20090619
  Transmission Date: 20091009
  Serious: Yes (Hospitalization)
  Sender: FDA-Public Use
  Company Number: DE-ELI_LILLY_AND_COMPANY-DE200906005298

PATIENT
  Age: 14 Year
  Sex: Female

DRUGS (3)
  1. STRATTERA [Suspect]
  2. METHYLPHENIDATE HCL [Concomitant]
  3. SIBUTRAMINE [Concomitant]

REACTIONS (2)
  - AGITATION [None]
  - CONFUSIONAL STATE [None]
